FAERS Safety Report 10777410 (Version 1)
Quarter: 2015Q1

REPORT INFORMATION
  Report Type: Spontaneous
  Country: US (occurrence: None)
  Receive Date: 20150206
  Receipt Date: 20150206
  Transmission Date: 20150721
  Serious: No
  Sender: FDA-Public Use
  Company Number: None

PATIENT
  Age: 53 Year
  Sex: Female
  Weight: 68.04 kg

DRUGS (2)
  1. ULTRAM [Suspect]
     Active Substance: TRAMADOL HYDROCHLORIDE
     Indication: PAIN
     Route: 048
     Dates: start: 20150127, end: 20150128
  2. ULTRAM [Suspect]
     Active Substance: TRAMADOL HYDROCHLORIDE
     Indication: LIMB INJURY
     Route: 048
     Dates: start: 20150127, end: 20150128

REACTIONS (10)
  - Rash [None]
  - Inflammation [None]
  - Skin exfoliation [None]
  - Flushing [None]
  - Lip exfoliation [None]
  - Erythema [None]
  - Swelling face [None]
  - Pain [None]
  - Pruritus generalised [None]
  - Oedema [None]

NARRATIVE: CASE EVENT DATE: 20150128
